FAERS Safety Report 7351093-3 (Version None)
Quarter: 2011Q1

REPORT INFORMATION
  Report Type: 
  Country: None (occurrence: None)
  Receive Date: 20110314
  Receipt Date: 20110309
  Transmission Date: 20110831
  Serious: Yes (Life-Threatening, Hospitalization)
  Sender: FDA-Public Use
  Company Number: DK-PFIZER INC-2009288047

PATIENT
  Age: 62 Year
  Sex: Male

DRUGS (10)
  1. FLUCONAZOLE [Suspect]
     Indication: PYREXIA
     Dosage: 200 MG, 1X/DAY
     Dates: start: 20080429, end: 20080519
  2. B-COMBIN [Concomitant]
     Indication: HYPOVITAMINOSIS
     Dosage: UNK
  3. PANTOLOC [Suspect]
     Dosage: 40 MG, 1X/DAY
     Route: 048
     Dates: start: 20080527, end: 20080530
  4. LANSOPRAZOLE [Suspect]
     Indication: GASTRIC ULCER
     Dosage: 30 MG, 2X/DAY
     Route: 048
     Dates: start: 20080507, end: 20080523
  5. PANTOLOC [Suspect]
     Indication: ABDOMINAL PAIN
     Dosage: 40 MG, 1X/DAY
     Route: 048
     Dates: start: 20080428, end: 20080507
  6. THIAMINE HCL [Concomitant]
     Indication: HYPOVITAMINOSIS
     Dosage: 300 MG, 1X/DAY
     Dates: start: 20080428
  7. ZINACEF [Concomitant]
     Dosage: 750 MG, 3X/DAY
     Route: 030
     Dates: start: 20080430, end: 20080510
  8. MERONEM [Suspect]
     Indication: PYREXIA
     Dosage: 1000 MG, 3X/DAY
     Route: 042
     Dates: start: 20080511, end: 20080516
  9. ZINACEF [Concomitant]
     Indication: PYREXIA
     Dosage: 1500 MG, 3X/DAY
     Route: 030
     Dates: start: 20080428, end: 20080430
  10. CIPROFLOXACIN [Suspect]
     Indication: PYREXIA
     Dosage: 800 MG, 1X/DAY
     Dates: start: 20080430, end: 20080503

REACTIONS (4)
  - PAIN IN EXTREMITY [None]
  - TREMOR [None]
  - PARAESTHESIA [None]
  - TOXIC EPIDERMAL NECROLYSIS [None]
